FAERS Safety Report 9406491 (Version 1)
Quarter: 2013Q3

REPORT INFORMATION
  Report Type: Spontaneous
  Country: FR (occurrence: FR)
  Receive Date: 20130718
  Receipt Date: 20130718
  Transmission Date: 20140515
  Serious: Yes (Hospitalization)
  Sender: FDA-Public Use
  Company Number: FR-009507513-1307FRA004293

PATIENT
  Age: 34 Year
  Sex: Female

DRUGS (3)
  1. GONADOTROPHINE CHORIONIQUE ENDO 5000 UI/1ML [Suspect]
     Dosage: 10000 IU, ONCE
     Route: 030
     Dates: start: 20090126
  2. GONAL-F [Suspect]
     Dosage: UNK
     Route: 058
     Dates: start: 20090116, end: 20090125
  3. DECAPEPTYL (TRIPTORELIN ACETATE) [Suspect]
     Dosage: 3.75 MG, ONCE
     Route: 030
     Dates: start: 200901

REACTIONS (3)
  - Ovarian hyperstimulation syndrome [Recovered/Resolved]
  - Dyspnoea [Recovered/Resolved]
  - Ascites [Recovered/Resolved]
